FAERS Safety Report 9827176 (Version 2)
Quarter: 2014Q1

REPORT INFORMATION
  Report Type: Spontaneous
  Country: US (occurrence: US)
  Receive Date: 20140117
  Receipt Date: 20140220
  Transmission Date: 20141002
  Serious: Yes (Other)
  Sender: FDA-Public Use
  Company Number: US-PFIZER INC-2014015328

PATIENT
  Age: 40 Year
  Sex: Male
  Weight: 87.08 kg

DRUGS (2)
  1. SOLU-MEDROL [Suspect]
     Indication: RASH
     Dosage: 125 MG, 1X/DAY
     Route: 030
     Dates: start: 20140115, end: 20140115
  2. SOLU-MEDROL [Suspect]
     Indication: HYPERSENSITIVITY

REACTIONS (5)
  - Syncope [Unknown]
  - Pain [Recovered/Resolved]
  - Asthenia [Recovered/Resolved]
  - Dizziness [Recovered/Resolved]
  - Pallor [Recovered/Resolved]
